FAERS Safety Report 9639830 (Version 1)
Quarter: 2013Q4

REPORT INFORMATION
  Report Type: Spontaneous
  Country: US (occurrence: None)
  Receive Date: 20131021
  Receipt Date: 20131021
  Transmission Date: 20140711
  Serious: Yes (Hospitalization, Disabling)
  Sender: FDA-Public Use
  Company Number: None

PATIENT
  Age: 57 Year
  Sex: Female
  Weight: 63.5 kg

DRUGS (1)
  1. CIPROFLOXACIN HCL [Suspect]
     Indication: URINARY TRACT INFECTION
     Dosage: 1 TABLET BY MOUTH TWO TIMES DA TWICE DAILY TAKEN BY MOUTH
     Route: 048
     Dates: start: 20130910, end: 20130916

REACTIONS (6)
  - Diarrhoea [None]
  - Fatigue [None]
  - Hypoaesthesia [None]
  - Pain in extremity [None]
  - Pain in extremity [None]
  - Toxicity to various agents [None]
